FAERS Safety Report 4413569-8 (Version None)
Quarter: 2004Q2

REPORT INFORMATION
  Report Type: 
  Country: None (occurrence: None)
  Receive Date: 20040630
  Receipt Date: 20040528
  Transmission Date: 20050107
  Serious: No
  Sender: FDA-Public Use
  Company Number: 04P-163-0262292-00

PATIENT
  Sex: Female
  Weight: 47.6277 kg

DRUGS (5)
  1. HUMIRA [Suspect]
     Indication: RHEUMATOID ARTHRITIS
     Dosage: 40 MG, 1 IN 2 WK, INJECTION
     Dates: start: 20040401
  2. OXYCOCET [Concomitant]
  3. CELECOXIB [Concomitant]
  4. MULTI-VITAMINS [Concomitant]
  5. PREDNISONE [Concomitant]

REACTIONS (1)
  - CANDIDIASIS [None]
